FAERS Safety Report 7117301-9 (Version None)
Quarter: 2010Q4

REPORT INFORMATION
  Report Type: 
  Country: None (occurrence: None)
  Receive Date: 20101122
  Receipt Date: 20101110
  Transmission Date: 20110411
  Serious: Yes (Hospitalization)
  Sender: FDA-Public Use
  Company Number: JP-ELI_LILLY_AND_COMPANY-JP201011002896

PATIENT
  Age: 79 Year
  Sex: Female

DRUGS (2)
  1. HUMALOG [Suspect]
     Indication: TYPE 1 DIABETES MELLITUS
     Dosage: UNK, 2 U IN THE MORNING, 3 U IN THE NOON, O U IN THE EVENING
     Route: 058
  2. LANTUS [Concomitant]
     Indication: TYPE 1 DIABETES MELLITUS
     Dosage: UNK, 6 U IN THE MORNING, 6 U IN THE EVENING
     Route: 058

REACTIONS (2)
  - DIABETES MELLITUS INADEQUATE CONTROL [None]
  - HYPOGLYCAEMIA UNAWARENESS [None]
